FAERS Safety Report 10154368 (Version 1)
Quarter: 2014Q2

REPORT INFORMATION
  Report Type: Spontaneous
  Country: US (occurrence: None)
  Receive Date: 20140505
  Receipt Date: 20140505
  Transmission Date: 20141212
  Serious: Yes (Disabling)
  Sender: FDA-Public Use
  Company Number: None

PATIENT
  Age: 60 Year
  Sex: Male
  Weight: 99.79 kg

DRUGS (1)
  1. VENLAFAXINE HYDROCHLORIDE ER CAPSULES, 37.5 MG (BASE) [Suspect]
     Indication: DEPRESSION
     Route: 048
     Dates: start: 20130501, end: 20130530

REACTIONS (2)
  - Drug ineffective [None]
  - Product substitution issue [None]
